FAERS Safety Report 5795317-2 (Version None)
Quarter: 2008Q2

REPORT INFORMATION
  Report Type: 
  Country: None (occurrence: None)
  Receive Date: 20080601
  Receipt Date: 20080129
  Transmission Date: 20081010
  Serious: No
  Sender: FDA-Public Use
  Company Number: US200801006676

PATIENT
  Age: 66 Year
  Sex: Female

DRUGS (5)
  1. BYETTA [Suspect]
     Indication: TYPE 2 DIABETES MELLITUS
     Dosage: 5 UG, 2/D, SUBCUTANEOUS
     Route: 058
     Dates: start: 20080126
  2. GLIPIZIDE [Concomitant]
  3. FORTAMET (METFORMIN HYDROCHLORIDE) [Concomitant]
  4. AVANDIA [Concomitant]
  5. PRILOSEC [Concomitant]

REACTIONS (7)
  - BLOOD GLUCOSE INCREASED [None]
  - DECREASED APPETITE [None]
  - DYSPEPSIA [None]
  - MALAISE [None]
  - NAUSEA [None]
  - OESOPHAGEAL DISCOMFORT [None]
  - REFLUX OESOPHAGITIS [None]
